FAERS Safety Report 26140692 (Version 1)
Quarter: 2025Q4

REPORT INFORMATION
  Report Type: Spontaneous
  Country: EU (occurrence: EU)
  Receive Date: 20251210
  Receipt Date: 20251210
  Transmission Date: 20260118
  Serious: Yes (Life-Threatening, Hospitalization)
  Sender: PURDUE
  Company Number: EU-PURDUE-USA-2025-0322826

PATIENT
  Age: 63 Year
  Sex: Male
  Weight: 62.6 kg

DRUGS (2)
  1. OXYCODONE HYDROCHLORIDE [Suspect]
     Active Substance: OXYCODONE HYDROCHLORIDE
     Indication: Product used for unknown indication
     Dosage: OXYCODONE IMMEDIATE RELEASE 20 MG 8X/DAY IF NEEDED OXYCODONE LP 80 MG 1.0.1 OXYCODONE LP 10 MG 1.0.1
     Route: 048
     Dates: end: 20250718
  2. OXYCODONE HYDROCHLORIDE [Suspect]
     Active Substance: OXYCODONE HYDROCHLORIDE
     Dosage: ASSUMPTION: HIGHER DOSE THAN USUAL TTT
     Route: 048
     Dates: start: 20250719, end: 20250719

REACTIONS (6)
  - Coma [Recovered/Resolved]
  - Respiratory failure [Recovered/Resolved]
  - Respiratory acidosis [Recovered/Resolved]
  - Miosis [Recovered/Resolved]
  - Acute kidney injury [Recovered/Resolved]
  - Drug use disorder [Recovering/Resolving]

NARRATIVE: CASE EVENT DATE: 20210101
